FAERS Safety Report 8375560-9 (Version None)
Quarter: 2012Q1

REPORT INFORMATION
  Report Type: 
  Country: None (occurrence: None)
  Receive Date: 20120323
  Receipt Date: 20110714
  Transmission Date: 20120608
  Serious: Yes (Other)
  Sender: FDA-Public Use
  Company Number: 163-21880-11020722

PATIENT
  Age: 49 Year
  Sex: Male

DRUGS (9)
  1. ACETAMINOPHEN [Concomitant]
  2. REVLIMID [Suspect]
     Indication: MULTIPLE MYELOMA
     Dosage: 10 MG, DAILY X 21 DAYS, PO
     Route: 048
     Dates: start: 20110101
  3. ASPIRIN [Concomitant]
  4. AMLODIPINE [Concomitant]
  5. TESTOSTERONE [Concomitant]
  6. AMITRIPTYLIN (AMITRIPTYLINE HYDROCHLORIDE) [Concomitant]
  7. NEURONTIN [Concomitant]
  8. ACYCLOVIR [Concomitant]
  9. TRICOR [Concomitant]

REACTIONS (4)
  - BLOOD TRIGLYCERIDES INCREASED [None]
  - ABDOMINAL PAIN [None]
  - NEUROPATHY PERIPHERAL [None]
  - DIARRHOEA HAEMORRHAGIC [None]
